FAERS Safety Report 6576342-0 (Version None)
Quarter: 2010Q1

REPORT INFORMATION
  Report Type: 
  Country: None (occurrence: None)
  Receive Date: 20100210
  Receipt Date: 20100201
  Transmission Date: 20100710
  Serious: Yes (Hospitalization)
  Sender: FDA-Public Use
  Company Number: JP-JNJFOC-20091005408

PATIENT
  Sex: Female
  Weight: 98 kg

DRUGS (10)
  1. DOXORUBICIN HCL [Suspect]
     Indication: OVARIAN CANCER RECURRENT
     Dosage: CYCLE 3
     Route: 042
     Dates: start: 20090729
  2. DOXORUBICIN HCL [Suspect]
     Dosage: CYCLE 2
     Route: 042
     Dates: start: 20090729
  3. DOXORUBICIN HCL [Suspect]
     Dosage: CYCLE 1
     Route: 042
     Dates: start: 20090729
  4. ASPIRIN [Concomitant]
     Route: 048
  5. PLETAL [Concomitant]
     Route: 048
  6. WARFARIN SODIUM [Concomitant]
     Route: 048
  7. PAXIL [Concomitant]
     Route: 048
  8. LAMISIL [Concomitant]
     Route: 048
  9. GRANISETRON [Concomitant]
     Indication: PROPHYLAXIS
     Route: 042
  10. DECADRON [Concomitant]
     Indication: PROPHYLAXIS
     Route: 042

REACTIONS (4)
  - LYMPHOEDEMA [None]
  - PLEURAL EFFUSION [None]
  - PULMONARY EMBOLISM [None]
  - VENOUS THROMBOSIS LIMB [None]
